FAERS Safety Report 24020159 (Version 2)
Quarter: 2024Q3

REPORT INFORMATION
  Report Type: Spontaneous
  Country: US (occurrence: US)
  Receive Date: 20240627
  Receipt Date: 20240820
  Transmission Date: 20241016
  Serious: Yes (Other)
  Sender: PFIZER
  Company Number: US-SEATTLE GENETICS-2024SGN02565

PATIENT
  Age: 65 Year
  Sex: Female

DRUGS (4)
  1. TUKYSA [Suspect]
     Active Substance: TUCATINIB
     Dosage: 150 MG
  2. TUKYSA [Suspect]
     Active Substance: TUCATINIB
     Dosage: 50MG 2 TABLETS IN THE MORNING, AND 2 TABLETS IN THE EVENING
  3. TUKYSA [Suspect]
     Active Substance: TUCATINIB
     Dosage: 50MG, TWO TABLETS TWICE A DAY
  4. TUKYSA [Suspect]
     Active Substance: TUCATINIB
     Dosage: 2 DF, 2X/DAY (50 MG 2 TABLETS IN THE MORNING AND 2 TABLETS IN THE EVENING)

REACTIONS (2)
  - Nephrolithiasis [Not Recovered/Not Resolved]
  - Off label use [Unknown]

NARRATIVE: CASE EVENT DATE: 20230501
